FAERS Safety Report 7732952-6 (Version None)
Quarter: 2011Q3

REPORT INFORMATION
  Report Type: 
  Country: None (occurrence: None)
  Receive Date: 20110907
  Receipt Date: 20110901
  Transmission Date: 20111222
  Serious: Yes (Other)
  Sender: FDA-Public Use
  Company Number: US-PFIZER INC-2011204757

PATIENT
  Sex: Female
  Weight: 61.678 kg

DRUGS (1)
  1. XALATAN [Suspect]
     Indication: GLAUCOMA
     Dosage: 1 GTT IN EACH EYE, 1X/DAY
     Route: 047

REACTIONS (6)
  - VISION BLURRED [None]
  - ANXIETY [None]
  - TREMOR [None]
  - HEADACHE [None]
  - MALAISE [None]
  - SLEEP DISORDER [None]
